FAERS Safety Report 11632077 (Version 4)
Quarter: 2016Q3

REPORT INFORMATION
  Report Type: Spontaneous
  Country: US (occurrence: US)
  Receive Date: 20151015
  Receipt Date: 20160707
  Transmission Date: 20161109
  Serious: Yes (Other)
  Sender: FDA-Public Use
  Company Number: US-BAYER-2015-438959

PATIENT
  Age: 23 Year
  Sex: Female

DRUGS (5)
  1. MIRENA [Suspect]
     Active Substance: LEVONORGESTREL
     Indication: CONTRACEPTION
     Dosage: 20 MCG/24HR, CONT
     Route: 015
     Dates: start: 20120830, end: 201410
  2. FIORICET [Concomitant]
     Active Substance: ACETAMINOPHEN\BUTALBITAL\CAFFEINE
  3. MIRENA [Suspect]
     Active Substance: LEVONORGESTREL
     Indication: CONTRACEPTION
     Dosage: 20 MCG/24HR, CONT
     Route: 015
     Dates: start: 200410, end: 200502
  4. AMOXICILLIN. [Concomitant]
     Active Substance: AMOXICILLIN
     Dosage: 875 MG, UNK
  5. IBUPROFEN. [Concomitant]
     Active Substance: IBUPROFEN

REACTIONS (12)
  - Visual impairment [None]
  - Amnesia [None]
  - Vision blurred [None]
  - Migraine [Recovered/Resolved]
  - Confusional state [None]
  - Diplopia [None]
  - Injury [None]
  - Benign intracranial hypertension [None]
  - Visual impairment [Recovered/Resolved]
  - Pain [None]
  - Migraine [None]
  - Cognitive disorder [None]

NARRATIVE: CASE EVENT DATE: 200411
